FAERS Safety Report 7022904-6 (Version None)
Quarter: 2010Q3

REPORT INFORMATION
  Report Type: 
  Country: None (occurrence: None)
  Receive Date: 20100930
  Receipt Date: 20100927
  Transmission Date: 20110219
  Serious: Yes (Other)
  Sender: FDA-Public Use
  Company Number: US-PFIZER INC-2010123272

PATIENT
  Sex: Male
  Weight: 108.84 kg

DRUGS (3)
  1. CELEBREX [Suspect]
     Indication: INFLAMMATION
     Dosage: 200 MG, 1X/DAY
     Route: 048
     Dates: start: 20100927
  2. CELEBREX [Suspect]
     Indication: SURGERY
  3. ZITHROMAX [Concomitant]
     Dosage: UNK

REACTIONS (4)
  - BURNING SENSATION [None]
  - ERYTHEMA [None]
  - EXTRASYSTOLES [None]
  - HYPERTENSION [None]
